FAERS Safety Report 24106116 (Version 4)
Quarter: 2025Q1

REPORT INFORMATION
  Report Type: Spontaneous
  Country: JP (occurrence: JP)
  Receive Date: 20240717
  Receipt Date: 20250210
  Transmission Date: 20250408
  Serious: Yes (Life-Threatening, Hospitalization)
  Sender: ALEXION PHARMACEUTICALS
  Company Number: 2024A161528

PATIENT
  Age: 70 Year
  Weight: 68 kg

DRUGS (12)
  1. LYNPARZA [Suspect]
     Active Substance: OLAPARIB
     Indication: Ovarian cancer
     Dosage: 300 MILLIGRAM, BID
  2. FEBUXOSTAT [Concomitant]
     Active Substance: FEBUXOSTAT
  3. PREGABALIN [Concomitant]
     Active Substance: PREGABALIN
  4. METHYLCOBALAMIN [Concomitant]
     Active Substance: METHYLCOBALAMIN
  5. FAMOTIDINE [Concomitant]
     Active Substance: FAMOTIDINE
  6. CELECOXIB [Concomitant]
     Active Substance: CELECOXIB
  7. MIRABEGRON [Concomitant]
     Active Substance: MIRABEGRON
  8. AMITIZA [Concomitant]
     Active Substance: LUBIPROSTONE
  9. ACETAMINOPHEN [Concomitant]
     Active Substance: ACETAMINOPHEN
  10. LINAGLIPTIN [Concomitant]
     Active Substance: LINAGLIPTIN
     Indication: Diabetes mellitus
  11. METFORMIN HYDROCHLORIDE [Concomitant]
     Active Substance: METFORMIN HYDROCHLORIDE
     Indication: Diabetes mellitus
  12. BEVACIZUMAB [Concomitant]
     Active Substance: BEVACIZUMAB
     Indication: Ovarian cancer
     Route: 065

REACTIONS (3)
  - Anaemia [Recovered/Resolved]
  - Taste disorder [Unknown]
  - Fatigue [Unknown]
